FAERS Safety Report 6347302-X (Version None)
Quarter: 2009Q3

REPORT INFORMATION
  Report Type: 
  Country: None (occurrence: None)
  Receive Date: 20090908
  Receipt Date: 20090908
  Transmission Date: 20100115
  Serious: Yes (Life-Threatening, Hospitalization)
  Sender: FDA-Public Use
  Company Number: None

PATIENT
  Age: 21 Year
  Sex: Female
  Weight: 83.9154 kg

DRUGS (1)
  1. OVCON-35 [Suspect]
     Indication: CONTRACEPTION
     Dosage: 1XDAY PO
     Route: 048
     Dates: start: 20020701, end: 20020801

REACTIONS (1)
  - PULMONARY EMBOLISM [None]
